FAERS Safety Report 4477770-X (Version None)
Quarter: 2004Q4

REPORT INFORMATION
  Report Type: 
  Country: None (occurrence: None)
  Receive Date: 20041014
  Receipt Date: 20041001
  Transmission Date: 20050328
  Serious: Yes (Other)
  Sender: FDA-Public Use
  Company Number: 2004073296

PATIENT
  Age: 45 Year
  Sex: Female

DRUGS (4)
  1. GEODON [Suspect]
     Indication: ILL-DEFINED DISORDER
     Dosage: 160 MG
  2. NEURONTIN [Suspect]
     Indication: ILL-DEFINED DISORDER
  3. QUETIAPINE FUMARATE (QUETIAPINE FUMARATE) [Suspect]
     Indication: ILL-DEFINED DISORDER
     Dosage: 100 MG
  4. CANNABIS (CANNABIS) [Suspect]
     Indication: ILL-DEFINED DISORDER

REACTIONS (4)
  - COGNITIVE DETERIORATION [None]
  - PAIN [None]
  - PARAESTHESIA [None]
  - SPEECH DISORDER [None]
